FAERS Safety Report 11617157 (Version 2)
Quarter: 2015Q4

REPORT INFORMATION
  Report Type: Not Available
  Country: ES (occurrence: ES)
  Receive Date: 20151009
  Receipt Date: 20151030
  Transmission Date: 20160304
  Serious: Yes (Other)
  Sender: FDA-Public Use
  Company Number: ES-PURDUE PHARMA-GBR-2015-0031242

PATIENT
  Age: 59 Year
  Sex: Female

DRUGS (9)
  1. MST                                /00036302/ [Concomitant]
     Active Substance: MORPHINE SULFATE
     Dosage: 30 MG, Q12H
  2. MST                                /00036302/ [Concomitant]
     Active Substance: MORPHINE SULFATE
     Dosage: 10 MG, Q12H
  3. ZINNAT                             /00454602/ [Concomitant]
     Active Substance: CEFUROXIME SODIUM
     Dosage: 200 MG, AT BREAKFAST AND DINNER
  4. SEVREDOL 20, COMPRIMIDOS [Suspect]
     Active Substance: MORPHINE SULFATE
     Indication: PRODUCT USED FOR UNKNOWN INDICATION
     Dosage: UNK UNK, PRN
     Route: 048
     Dates: start: 20150707
  5. PALEXIA [Suspect]
     Active Substance: TAPENTADOL HYDROCHLORIDE
     Indication: PRODUCT USED FOR UNKNOWN INDICATION
     Dosage: 100 MG, BID
     Route: 048
     Dates: start: 20150707
  6. LYRICA [Concomitant]
     Active Substance: PREGABALIN
     Dosage: 150 MG, AT BREAKFAST AND DINNER
  7. LOVASTATINA [Concomitant]
     Dosage: WITH DINNER
  8. BROMAZEPAM [Concomitant]
     Active Substance: BROMAZEPAM
     Dosage: 1.5 MG, AT BREAKFAST
  9. PANTOPRAZOLE [Concomitant]
     Active Substance: PANTOPRAZOLE SODIUM
     Dosage: 40 MG, AT BREAKFAST

REACTIONS (2)
  - Vomiting [Recovering/Resolving]
  - Somnolence [Recovering/Resolving]

NARRATIVE: CASE EVENT DATE: 20150910
